FAERS Safety Report 9127024 (Version 1)
Quarter: 2013Q1

REPORT INFORMATION
  Report Type: Spontaneous
  Country: GB (occurrence: GB)
  Receive Date: 20130228
  Receipt Date: 20130228
  Transmission Date: 20140127
  Serious: Yes (Other)
  Sender: FDA-Public Use
  Company Number: PHHY2013GB018299

PATIENT
  Age: 52 Year
  Sex: Male
  Weight: 69.39 kg

DRUGS (5)
  1. DICLOFENAC [Suspect]
     Dosage: UNK UKN, UNK
  2. HUMIRA [Suspect]
     Indication: PSORIASIS
     Dosage: 40 MG, BIW
     Route: 058
     Dates: start: 20120216
  3. HUMIRA [Suspect]
     Dosage: 80 MG, BIW
     Dates: start: 20121024
  4. METHOTREXATE [Concomitant]
     Indication: PSORIASIS
     Dosage: 10 MG, QW
     Route: 048
  5. FLUOXETINE [Concomitant]
     Indication: DEPRESSION
     Route: 048
     Dates: start: 20111012

REACTIONS (8)
  - Nephrolithiasis [Unknown]
  - Cyanosis [Unknown]
  - Renal pain [Recovered/Resolved]
  - Asthenia [Unknown]
  - Hypersensitivity [Unknown]
  - Dyspnoea [Recovered/Resolved]
  - Blood pressure decreased [Unknown]
  - Pruritus generalised [Unknown]
